FAERS Safety Report 7402144-9 (Version None)
Quarter: 2011Q2

REPORT INFORMATION
  Report Type: 
  Country: None (occurrence: None)
  Receive Date: 20110408
  Receipt Date: 20110311
  Transmission Date: 20111010
  Serious: Yes (Other)
  Sender: FDA-Public Use
  Company Number: US-BAYER-2010-008985

PATIENT
  Age: 26 Year
  Sex: Female
  Weight: 113.38 kg

DRUGS (6)
  1. OCELLA [Suspect]
     Indication: ACNE
  2. PREVACID [Concomitant]
  3. YASMIN [Suspect]
     Indication: ACNE
  4. YAZ [Suspect]
     Indication: ACNE
  5. ACETAMINOPHEN [Concomitant]
     Indication: HEADACHE
     Dosage: UNK
     Dates: start: 20050101, end: 20100101
  6. ROBITUSSIN [Concomitant]
     Indication: NASOPHARYNGITIS
     Dosage: UNK
     Dates: start: 20050101, end: 20100101

REACTIONS (7)
  - CHOLECYSTECTOMY [None]
  - PAIN [None]
  - DYSPNOEA [None]
  - CHOLECYSTITIS CHRONIC [None]
  - CHOLELITHIASIS [None]
  - INJURY [None]
  - CHEST PAIN [None]
